FAERS Safety Report 6835893-1 (Version None)
Quarter: 2010Q3

REPORT INFORMATION
  Report Type: 
  Country: None (occurrence: None)
  Receive Date: 20100713
  Receipt Date: 20100709
  Transmission Date: 20110219
  Serious: Yes (Death)
  Sender: FDA-Public Use
  Company Number: AT-CELGENEUS-009-21880-10070583

PATIENT
  Sex: Male

DRUGS (2)
  1. REVLIMID [Suspect]
     Route: 048
     Dates: start: 20100422
  2. REVLIMID [Suspect]

REACTIONS (1)
  - BONE MARROW FAILURE [None]
